FAERS Safety Report 15509360 (Version 1)
Quarter: 2018Q4

REPORT INFORMATION
  Report Type: Spontaneous
  Country: US (occurrence: US)
  Receive Date: 20181010
  Receipt Date: 20181010
  Transmission Date: 20190205
  Serious: Yes (Disabling, Other)
  Sender: FDA-Public Use
  Company Number: None

PATIENT
  Age: 46 Year
  Sex: Female

DRUGS (2)
  1. HYDROCO/APAP [Suspect]
     Active Substance: ACETAMINOPHEN\HYDROCODONE
     Indication: PAIN
     Dosage: ?          QUANTITY:15 TABLET(S);?
     Route: 048
  2. IBUPROFEN 600 [Suspect]
     Active Substance: IBUPROFEN
     Indication: PAIN
     Dosage: ?          QUANTITY:30 TABLET(S);?
     Route: 048
     Dates: start: 20181008, end: 20181009

REACTIONS (4)
  - Peripheral swelling [None]
  - Product complaint [None]
  - Product label issue [None]
  - Swelling face [None]

NARRATIVE: CASE EVENT DATE: 20181010
